FAERS Safety Report 14094888 (Version 5)
Quarter: 2022Q1

REPORT INFORMATION
  Report Type: Report from Study
  Country: US (occurrence: US)
  Receive Date: 20171016
  Receipt Date: 20220224
  Transmission Date: 20220424
  Serious: Yes (Hospitalization)
  Sender: FDA-Public Use
  Company Number: US-PFIZER INC-2017351854

PATIENT
  Age: 78 Year
  Sex: Female
  Weight: 57.506 kg

DRUGS (22)
  1. PLACEBO [Suspect]
     Active Substance: UNSPECIFIED INGREDIENT
     Indication: Clostridium difficile immunisation
     Dosage: SINGLE DOSE
     Route: 030
     Dates: start: 20170626, end: 20170626
  2. DOXYCYCLINE HYCLATE [Suspect]
     Active Substance: DOXYCYCLINE HYCLATE
     Indication: Chronic obstructive pulmonary disease
     Dosage: 100 MG, 2X/DAY
     Route: 048
     Dates: start: 20170801, end: 20170810
  3. PREDNISONE [Suspect]
     Active Substance: PREDNISONE
     Indication: Chronic obstructive pulmonary disease
     Dosage: 60 MG, DAILY
     Route: 048
     Dates: start: 20170801, end: 20170801
  4. PREDNISONE [Suspect]
     Active Substance: PREDNISONE
     Dosage: 50 MG, DAILY
     Route: 048
     Dates: start: 20170802, end: 20170802
  5. PREDNISONE [Suspect]
     Active Substance: PREDNISONE
     Dosage: 40 MG, DAILY
     Route: 048
     Dates: start: 20170803, end: 20170803
  6. PREDNISONE [Suspect]
     Active Substance: PREDNISONE
     Dosage: 30 MG, DAILY
     Route: 048
     Dates: start: 20170804, end: 20170804
  7. PREDNISONE [Suspect]
     Active Substance: PREDNISONE
     Dosage: 20 MG, DAILY
     Route: 048
     Dates: start: 20170805, end: 20170805
  8. PREDNISONE [Suspect]
     Active Substance: PREDNISONE
     Dosage: 10 MG, DAILY
     Route: 048
     Dates: start: 20170806, end: 20170806
  9. ALLEGRA [Concomitant]
     Active Substance: FEXOFENADINE HYDROCHLORIDE
     Indication: Seasonal allergy
     Dosage: 180 MG, 1X/DAY
     Route: 048
     Dates: start: 2000
  10. XANAX [Concomitant]
     Active Substance: ALPRAZOLAM
     Indication: Anxiety
     Dosage: 1 MG, 1X/DAY
     Route: 048
     Dates: start: 1994
  11. ARNUITY ELLIPTA [Concomitant]
     Active Substance: FLUTICASONE FUROATE
     Indication: Chronic obstructive pulmonary disease
     Dosage: 1 PUFF, 1X/DAY
     Route: 055
     Dates: start: 2017
  12. CALCIUM\CHOLECALCIFEROL [Concomitant]
     Active Substance: CALCIUM\CHOLECALCIFEROL
     Indication: Supplementation therapy
     Dosage: 600 MG, 1X/DAY
     Route: 048
     Dates: start: 1994
  13. CARTIA XT [Concomitant]
     Active Substance: DILTIAZEM HYDROCHLORIDE
     Indication: Hypertension
     Dosage: 240 MG, 1X/DAY
     Route: 048
     Dates: start: 1994
  14. DONEPEZIL [Concomitant]
     Active Substance: DONEPEZIL
     Indication: Dementia
     Dosage: 10 MG, 1X/DAY
     Route: 048
     Dates: start: 2014
  15. METOPROLOL [Concomitant]
     Active Substance: METOPROLOL
     Indication: Hypertension
     Dosage: 50 MG, 2X/DAY
     Route: 048
     Dates: start: 1994
  16. PAROXETINE [Concomitant]
     Active Substance: PAROXETINE
     Indication: Anxiety
     Dosage: 10 MG, 1X/DAY
     Route: 048
     Dates: start: 2017
  17. IBUPROFEN [Concomitant]
     Active Substance: IBUPROFEN
     Indication: Osteoarthritis
     Dosage: 200 MG, 3X/DAY
     Route: 048
     Dates: start: 2014
  18. STIOLTO RESPIMAT [Concomitant]
     Active Substance: OLODATEROL HYDROCHLORIDE\TIOTROPIUM BROMIDE MONOHYDRATE
     Indication: Chronic obstructive pulmonary disease
     Dosage: 2 PUFF, 1X/DAY
     Route: 055
     Dates: start: 2017
  19. FLONASE [Concomitant]
     Active Substance: FLUTICASONE PROPIONATE
     Indication: Seasonal allergy
     Dosage: 2 SPRAYS, 1X/DAY
     Route: 045
     Dates: start: 2000
  20. XARELTO [Concomitant]
     Active Substance: RIVAROXABAN
     Indication: Deep vein thrombosis
     Dosage: 20 MG, 1X/DAY
     Route: 048
     Dates: start: 20170608
  21. SOLU-MEDROL [Concomitant]
     Active Substance: METHYLPREDNISOLONE SODIUM SUCCINATE
     Indication: Chronic obstructive pulmonary disease
     Dosage: 125 MG/2 ML, 1X/DAY
     Route: 030
     Dates: start: 20170801, end: 20170801
  22. CEFTRIAXONE SODIUM [Concomitant]
     Active Substance: CEFTRIAXONE SODIUM
     Indication: Chronic obstructive pulmonary disease
     Dosage: 1 G, 1X/DAY
     Route: 030
     Dates: start: 20170801, end: 20170801

REACTIONS (1)
  - Chest pain [Recovered/Resolved]

NARRATIVE: CASE EVENT DATE: 20170810
